FAERS Safety Report 13961742 (Version 2)
Quarter: 2021Q2

REPORT INFORMATION
  Report Type: Report from Study
  Country: US (occurrence: US)
  Receive Date: 20170912
  Receipt Date: 20210413
  Transmission Date: 20210716
  Serious: Yes (Hospitalization, Other)
  Sender: FDA-Public Use
  Company Number: US-BAYER-2017-168957

PATIENT
  Sex: Female

DRUGS (1)
  1. GADOLINIUM [Suspect]
     Active Substance: GADOLINIUM
     Dosage: UNK

REACTIONS (62)
  - Skin lesion [None]
  - Skin burning sensation [None]
  - Diarrhoea [None]
  - Sinus disorder [None]
  - Nausea [None]
  - Dyspnoea [None]
  - Photosensitivity reaction [None]
  - Temperature intolerance [None]
  - Hepatic pain [None]
  - Lymphadenopathy [None]
  - Pollakiuria [None]
  - Neuralgia [None]
  - Dry eye [None]
  - Gadolinium deposition disease [Not Recovered/Not Resolved]
  - Bone pain [None]
  - Pain [None]
  - Exercise tolerance decreased [None]
  - Vomiting [None]
  - Weight decreased [None]
  - Stomatitis [None]
  - Inflammation [None]
  - Constipation [None]
  - Vertigo [None]
  - Body temperature decreased [None]
  - Anxiety [None]
  - Chest pain [None]
  - Visual impairment [None]
  - Swelling [None]
  - Thyroid disorder [None]
  - Abdominal pain [None]
  - Increased tendency to bruise [None]
  - Nontherapeutic agent urine positive [None]
  - Fatigue [None]
  - Palpitations [None]
  - Eye pain [None]
  - Asthenia [None]
  - Hypophagia [None]
  - Gastrointestinal pain [None]
  - Haemorrhage [None]
  - Tinnitus [None]
  - Hypersensitivity [None]
  - Fluid intake reduced [None]
  - Abdominal distension [None]
  - Renal pain [None]
  - Anaphylactoid reaction [None]
  - Urticaria [None]
  - Headache [None]
  - Bladder pain [None]
  - Mast cell activation syndrome [None]
  - Hyperhidrosis [None]
  - Lacrimation increased [None]
  - Paraesthesia [None]
  - Blood pressure decreased [None]
  - Cognitive disorder [None]
  - Alopecia [None]
  - Adverse drug reaction [None]
  - Pruritus [None]
  - Rash macular [None]
  - Flushing [None]
  - Arthralgia [None]
  - Tachycardia [None]
  - Hypoaesthesia [None]

NARRATIVE: CASE EVENT DATE: 20170514
